FAERS Safety Report 25942606 (Version 1)
Quarter: 2025Q4

REPORT INFORMATION
  Report Type: Spontaneous
  Country: MY (occurrence: MY)
  Receive Date: 20251021
  Receipt Date: 20251021
  Transmission Date: 20260118
  Serious: Yes (Hospitalization, Other)
  Sender: SANDOZ
  Company Number: MY-002147023-NVSC2025MY156063

PATIENT
  Age: 21 Year
  Sex: Male

DRUGS (10)
  1. AZITHROMYCIN [Suspect]
     Active Substance: AZITHROMYCIN
     Indication: Product used for unknown indication
     Dosage: 250 MG, QD
     Route: 065
  2. CYCLOSPORINE [Suspect]
     Active Substance: CYCLOSPORINE
     Indication: Product used for unknown indication
     Route: 065
  3. MONTELUKAST [Suspect]
     Active Substance: MONTELUKAST
     Indication: Product used for unknown indication
     Dosage: 10 MG, QD
     Route: 065
  4. RUXOLITINIB [Suspect]
     Active Substance: RUXOLITINIB
     Indication: Chronic graft versus host disease
     Dosage: 5 MG, BID (10 MG EOD)
     Route: 065
  5. TACROLIMUS [Suspect]
     Active Substance: TACROLIMUS
     Indication: Product used for unknown indication
     Dosage: 1 MG, QD
     Route: 065
  6. BUDESONIDE [Concomitant]
     Active Substance: BUDESONIDE
     Indication: Product used for unknown indication
     Dosage: UNK (2 PUFF BD)
     Route: 065
  7. MICAFUNGIN [Concomitant]
     Active Substance: MICAFUNGIN SODIUM
     Indication: Product used for unknown indication
     Route: 065
  8. MICAFUNGIN [Concomitant]
     Active Substance: MICAFUNGIN SODIUM
     Indication: Product used for unknown indication
     Route: 065
  9. PREDNISOLONE [Concomitant]
     Active Substance: PREDNISOLONE
     Indication: Product used for unknown indication
     Dosage: 1 MG/KG, QD
     Route: 065
  10. PREDNISOLONE [Concomitant]
     Active Substance: PREDNISOLONE
     Dosage: 5 MG, QD
     Route: 065

REACTIONS (27)
  - Graft versus host disease in skin [Recovering/Resolving]
  - Graft versus host disease in liver [Unknown]
  - Acute graft versus host disease in intestine [Unknown]
  - Pyrexia [Unknown]
  - Chest discomfort [Unknown]
  - Condition aggravated [Unknown]
  - Bronchiolitis [Unknown]
  - Bronchopulmonary aspergillosis [Unknown]
  - Haemoptysis [Unknown]
  - Pneumonia [Unknown]
  - Chronic graft versus host disease in lung [Unknown]
  - Lethargy [Unknown]
  - Chronic graft versus host disease in liver [Unknown]
  - Hepatic enzyme increased [Unknown]
  - Blood alkaline phosphatase increased [Unknown]
  - Chronic graft versus host disease in skin [Unknown]
  - Condition aggravated [Unknown]
  - Haemoptysis [Unknown]
  - Pleuritic pain [Unknown]
  - Rash [Unknown]
  - Cough [Unknown]
  - Cough [Unknown]
  - Pyrexia [Unknown]
  - Pyrexia [Unknown]
  - Herpes simplex [Unknown]
  - Pulmonary mass [Unknown]
  - Lung consolidation [Unknown]
